FAERS Safety Report 5613581-7 (Version None)
Quarter: 2008Q1

REPORT INFORMATION
  Report Type: 
  Country: None (occurrence: None)
  Receive Date: 20080205
  Receipt Date: 20080128
  Transmission Date: 20080703
  Serious: Yes (Other)
  Sender: FDA-Public Use
  Company Number: PHNU2007DE04250

PATIENT
  Age: 55 Year
  Sex: Female

DRUGS (5)
  1. FEMARA [Concomitant]
     Indication: BREAST CANCER
     Dosage: 2.5 DAILY (UNIT NOT PROVIDED)
     Route: 048
  2. ZOLADEX [Concomitant]
     Indication: BREAST CANCER
     Dosage: UNKNOWN
     Route: 065
  3. ZADITEN [Suspect]
     Indication: CONJUNCTIVITIS ALLERGIC
     Dosage: 1 TO 2 TIMES DAILY
  4. MAXALT-MLT [Concomitant]
     Indication: MIGRAINE
     Dosage: UNKNOWN
     Route: 060
  5. XUSAL [Concomitant]
     Indication: CONJUNCTIVITIS ALLERGIC
     Dosage: 1 DF, QD
     Route: 048

REACTIONS (1)
  - INTRAOCULAR PRESSURE INCREASED [None]
